FAERS Safety Report 4296257-0 (Version None)
Quarter: 2004Q1

REPORT INFORMATION
  Report Type: 
  Country: None (occurrence: None)
  Receive Date: 20040217
  Receipt Date: 20030930
  Transmission Date: 20041129
  Serious: No
  Sender: FDA-Public Use
  Company Number: US-GLAXOSMITHKLINE-A0428055A

PATIENT
  Age: 5 Year
  Sex: Female

DRUGS (3)
  1. LAMICTAL [Suspect]
     Dosage: 125MG PER DAY
     Route: 048
     Dates: start: 20030627
  2. CLONOPIN [Concomitant]
  3. ZARONTIN [Concomitant]

REACTIONS (1)
  - SOMNOLENCE [None]
